FAERS Safety Report 6348042-3 (Version None)
Quarter: 2009Q3

REPORT INFORMATION
  Report Type: 
  Country: None (occurrence: None)
  Receive Date: 20090908
  Receipt Date: 20090827
  Transmission Date: 20100115
  Serious: Yes (Life-Threatening, Hospitalization)
  Sender: FDA-Public Use
  Company Number: 2009-03393

PATIENT
  Age: 71 Year
  Sex: Female
  Weight: 82 kg

DRUGS (3)
  1. VELCADE [Suspect]
     Indication: NON-SMALL CELL LUNG CANCER
     Dosage: 1 MG/M2, INTRAVENOUS
     Route: 042
     Dates: start: 20090807, end: 20090807
  2. GEMCITABINE [Suspect]
     Indication: NON-SMALL CELL LUNG CANCER
     Dosage: 1000 UG/M2, INTRAVENOUS
     Route: 042
     Dates: start: 20090807, end: 20090807
  3. CISPLATIN [Suspect]
     Indication: NON-SMALL CELL LUNG CANCER
     Dosage: 70 UG/M2, INTRAVENOUS
     Route: 042
     Dates: start: 20090731, end: 20090731

REACTIONS (1)
  - PULMONARY EMBOLISM [None]
